FAERS Safety Report 4854288-3 (Version None)
Quarter: 2005Q4

REPORT INFORMATION
  Report Type: 
  Country: None (occurrence: None)
  Receive Date: 20051213
  Receipt Date: 20051213
  Transmission Date: 20060501
  Serious: Yes (Other)
  Sender: FDA-Public Use
  Company Number: None

PATIENT
  Age: 9 Year
  Sex: Male
  Weight: 23.1334 kg

DRUGS (2)
  1. DESMOPRESSIN ACETATE [Suspect]
     Indication: ENURESIS
     Dosage: 0.2 MG , 2 AT NIGHT
  2. . [Concomitant]

REACTIONS (2)
  - DRUG INEFFECTIVE [None]
  - ENURESIS [None]
